FAERS Safety Report 5748236-1 (Version None)
Quarter: 2008Q2

REPORT INFORMATION
  Report Type: 
  Country: None (occurrence: None)
  Receive Date: 20080523
  Receipt Date: 20080512
  Transmission Date: 20081010
  Serious: Yes (Other)
  Sender: FDA-Public Use
  Company Number: US-PFIZER INC-2007009139

PATIENT
  Sex: Female

DRUGS (2)
  1. AROMASIN [Suspect]
     Indication: BREAST CANCER
     Route: 048
  2. TAMOXIFEN CITRATE [Suspect]
     Indication: BREAST CANCER
     Dates: start: 20030101, end: 20050101

REACTIONS (4)
  - ENDOMETRIAL HYPERPLASIA [None]
  - HYPERCALCAEMIA [None]
  - HYPERCREATININAEMIA [None]
  - RENAL FAILURE ACUTE [None]
